FAERS Safety Report 7571003-3 (Version None)
Quarter: 2011Q2

REPORT INFORMATION
  Report Type: 
  Country: None (occurrence: None)
  Receive Date: 20110624
  Receipt Date: 20110617
  Transmission Date: 20111010
  Serious: Yes (Hospitalization, Other)
  Sender: FDA-Public Use
  Company Number: SE-ABBOTT-11P-150-0731888-00

PATIENT
  Sex: Female

DRUGS (4)
  1. HUMIRA [Suspect]
     Indication: ARTHRITIS
     Dosage: 1.2 ML DURING ONE MONTH
     Dates: start: 20091101, end: 20110504
  2. METHOTREXATE [Concomitant]
     Indication: ARTHRITIS
     Dosage: 10 MG WEEKLY
     Route: 048
  3. OMEPRAZOLE [Concomitant]
     Indication: PRODUCT USED FOR UNKNOWN INDICATION
  4. NAPROSYN ENTERO [Concomitant]
     Indication: PRODUCT USED FOR UNKNOWN INDICATION

REACTIONS (9)
  - CHILLS [None]
  - FEELING HOT [None]
  - PYREXIA [None]
  - ARTHRALGIA [None]
  - STAPHYLOCOCCAL INFECTION [None]
  - OSTEOMYELITIS [None]
  - BONE PAIN [None]
  - ERYTHEMA [None]
  - OSTEOSCLEROSIS [None]
